FAERS Safety Report 7945948-6 (Version None)
Quarter: 2011Q4

REPORT INFORMATION
  Report Type: 
  Country: None (occurrence: None)
  Receive Date: 20111129
  Receipt Date: 20111127
  Transmission Date: 20120403
  Serious: Yes (Other)
  Sender: FDA-Public Use
  Company Number: IN-ROCHE-1016712

PATIENT

DRUGS (3)
  1. PACLITAXEL [Suspect]
     Indication: NON-SMALL CELL LUNG CANCER
  2. CARBOPLATIN [Suspect]
     Indication: NON-SMALL CELL LUNG CANCER
  3. AVASTIN [Suspect]
     Indication: NON-SMALL CELL LUNG CANCER

REACTIONS (1)
  - LEUKOCYTOSIS [None]
